FAERS Safety Report 8091313-3 (Version None)
Quarter: 2012Q1

REPORT INFORMATION
  Report Type: 
  Country: None (occurrence: None)
  Receive Date: 20120129
  Receipt Date: 20111017
  Transmission Date: 20120608
  Serious: No
  Sender: FDA-Public Use
  Company Number: US-ABBOTT-11P-163-0865460-00

PATIENT
  Sex: Female
  Weight: 95.34 kg

DRUGS (9)
  1. CELEBREX [Concomitant]
     Indication: RHEUMATOID ARTHRITIS
  2. HYDROCHLOROTHIAZIDE [Concomitant]
     Indication: HYPERTENSION
  3. HUMIRA [Suspect]
     Indication: RHEUMATOID ARTHRITIS
     Dates: start: 20110916
  4. HYAMAX [Concomitant]
     Indication: GASTRIC DISORDER
  5. PREDNISONE TAB [Concomitant]
  6. OMEPRAZOLE [Concomitant]
     Indication: GASTRIC DISORDER
  7. VITAMIN TAB [Concomitant]
     Indication: VITAMIN SUPPLEMENTATION
  8. PREDNISONE TAB [Concomitant]
     Indication: RHEUMATOID ARTHRITIS
     Dates: start: 20111017, end: 20111017
  9. UNNAMED MEDICATION [Concomitant]
     Indication: GASTRIC DISORDER

REACTIONS (3)
  - ARTHRALGIA [None]
  - PAIN IN EXTREMITY [None]
  - MUSCULOSKELETAL PAIN [None]
